FAERS Safety Report 5680950-9 (Version None)
Quarter: 2008Q1

REPORT INFORMATION
  Report Type: 
  Country: None (occurrence: None)
  Receive Date: 20080325
  Receipt Date: 20080318
  Transmission Date: 20080703
  Serious: Yes (Life-Threatening, Other)
  Sender: FDA-Public Use
  Company Number: 163-21880-08021635

PATIENT
  Age: 73 Year
  Sex: Male

DRUGS (2)
  1. REVLIMID [Suspect]
     Indication: MULTIPLE MYELOMA
     Dosage: 15 MG, THREE TIMES A WEEK, ORAL
     Route: 048
     Dates: start: 20071025, end: 20071001
  2. HTN MEDICATION (ANTIHYPERTENSIVES) [Concomitant]

REACTIONS (1)
  - HEPATITIS [None]
